FAERS Safety Report 4404635-1 (Version None)
Quarter: 2004Q3

REPORT INFORMATION
  Report Type: 
  Country: None (occurrence: None)
  Receive Date: 20040721
  Receipt Date: 20040721
  Transmission Date: 20050211
  Serious: Yes (Hospitalization)
  Sender: FDA-Public Use
  Company Number: None

PATIENT
  Age: 40 Year
  Sex: Female

DRUGS (2)
  1. TEQUIN [Suspect]
     Indication: PNEUMONIA
     Dosage: PO QD
     Route: 048
     Dates: start: 20040616
  2. INSULIN PUMP [Concomitant]

REACTIONS (1)
  - HYPOGLYCAEMIA [None]
